FAERS Safety Report 15582877 (Version 1)
Quarter: 2018Q4

REPORT INFORMATION
  Report Type: Report from Study
  Country: ES (occurrence: ES)
  Receive Date: 20181103
  Receipt Date: 20181103
  Transmission Date: 20190205
  Serious: Yes (Hospitalization)
  Sender: FDA-Public Use
  Company Number: ES-ACCORD-090990

PATIENT
  Age: 88 Year
  Sex: Female

DRUGS (4)
  1. MEMANTINE. [Concomitant]
     Active Substance: MEMANTINE
     Dosage: 1 CP DAY
     Route: 048
     Dates: start: 20140101
  2. DONEPEZIL. [Concomitant]
     Active Substance: DONEPEZIL
     Dosage: 1-0-0
     Route: 048
     Dates: start: 20140101
  3. FUROSEMIDE. [Suspect]
     Active Substance: FUROSEMIDE
     Indication: PRODUCT USED FOR UNKNOWN INDICATION
     Dosage: 1-0-0
     Route: 048
     Dates: start: 20150505, end: 20170425
  4. OMEPRAZOLE. [Concomitant]
     Active Substance: OMEPRAZOLE
     Dosage: 1 CP DAY
     Route: 048
     Dates: start: 20140101

REACTIONS (1)
  - Acute kidney injury [Recovered/Resolved]

NARRATIVE: CASE EVENT DATE: 20170413
